FAERS Safety Report 6888293-2 (Version None)
Quarter: 2010Q3

REPORT INFORMATION
  Report Type: 
  Country: None (occurrence: None)
  Receive Date: 20100730
  Receipt Date: 20100721
  Transmission Date: 20110219
  Serious: Yes (Hospitalization, Other)
  Sender: FDA-Public Use
  Company Number: DE-BRISTOL-MYERS SQUIBB COMPANY-15201387

PATIENT
  Age: 57 Year
  Sex: Female
  Weight: 58 kg

DRUGS (7)
  1. ERBITUX [Suspect]
     Indication: NASAL SINUS CANCER
     Dosage: RECENT DOSE:250 MG/M2 (415MG) :(6TH DOSE)
     Route: 042
     Dates: start: 20100416
  2. RADIATION THERAPY [Concomitant]
     Indication: NASAL SINUS CANCER
     Dates: start: 20100421, end: 20100608
  3. IBUPROFEN TABLETS [Concomitant]
     Indication: TUMOUR PAIN
     Dates: start: 20100414
  4. OMEPRAZOLE [Concomitant]
     Dates: start: 20100414
  5. DEXAMETHASONE [Concomitant]
     Indication: PROPHYLAXIS OF NAUSEA AND VOMITING
     Dates: start: 20100414
  6. DOXEPIN HCL [Concomitant]
     Indication: DEPRESSION
     Dates: start: 20100414
  7. METRONIDAZOLE [Concomitant]
     Indication: BACTERIAL INFECTION

REACTIONS (3)
  - ACNE [None]
  - IMPAIRED HEALING [None]
  - INFECTION [None]
